FAERS Safety Report 5005278-1 (Version None)
Quarter: 2006Q2

REPORT INFORMATION
  Report Type: 
  Country: None (occurrence: None)
  Receive Date: 20060518
  Receipt Date: 20060510
  Transmission Date: 20061013
  Serious: Yes (Other)
  Sender: FDA-Public Use
  Company Number: BR-GLAXOSMITHKLINE-A0606070A

PATIENT
  Age: 35 Year
  Sex: Female
  Weight: 80 kg

DRUGS (1)
  1. AEROLIN [Suspect]
     Indication: PROPHYLAXIS
     Dosage: 2MG PER DAY
     Route: 048
     Dates: start: 20060411, end: 20060413

REACTIONS (2)
  - ABORTION SPONTANEOUS [None]
  - INTRA-UTERINE DEATH [None]
